FAERS Safety Report 6036464-X (Version None)
Quarter: 2009Q1

REPORT INFORMATION
  Report Type: 
  Country: None (occurrence: None)
  Receive Date: 20090112
  Receipt Date: 20081230
  Transmission Date: 20090719
  Serious: Yes (Hospitalization)
  Sender: FDA-Public Use
  Company Number: 1000003046

PATIENT
  Age: 76 Year
  Sex: Male
  Weight: 66 kg

DRUGS (5)
  1. MEMANTINE HCL [Suspect]
     Indication: DEMENTIA ALZHEIMER'S TYPE
     Dosage: 20 MG (20 MG, 1 IN 1 D), ORAL
     Route: 048
     Dates: start: 20080529, end: 20080829
  2. TOLTERODINE-L-TARTRATE (TABLETS) [Concomitant]
  3. OMEPRAZOLE [Concomitant]
  4. PERINDOPRIL (TABLETS) [Concomitant]
  5. VITAMIN B12 (INJECTION) [Concomitant]

REACTIONS (3)
  - COLON CANCER [None]
  - DRUG INEFFECTIVE [None]
  - HAEMORRHAGE [None]
